FAERS Safety Report 11653764 (Version 1)
Quarter: 2015Q4

REPORT INFORMATION
  Report Type: Spontaneous
  Country: US (occurrence: US)
  Receive Date: 20151022
  Receipt Date: 20151022
  Transmission Date: 20160304
  Serious: Yes (Other)
  Sender: FDA-Public Use
  Company Number: US-MYLANLABS-2015M1035760

PATIENT

DRUGS (4)
  1. SIROLIMUS. [Concomitant]
     Active Substance: SIROLIMUS
     Indication: IMMUNOSUPPRESSANT DRUG THERAPY
     Route: 065
  2. BORTEZOMIB [Suspect]
     Active Substance: BORTEZOMIB
     Indication: PRIMARY EFFUSION LYMPHOMA
     Dosage: 1.3 MG/M2 ON DAYS 1 AND 4 OF A 28-DAY CYCLE
     Route: 058
  3. CIDOFOVIR. [Suspect]
     Active Substance: CIDOFOVIR
     Indication: PRIMARY EFFUSION LYMPHOMA
     Dosage: 3 MG/KG WEEKLY
     Route: 033
  4. DOXORUBICIN [Suspect]
     Active Substance: DOXORUBICIN
     Indication: PRIMARY EFFUSION LYMPHOMA
     Dosage: 40 MG/M2 ON DAY 4 OF A 28-DAY CYCLE
     Route: 042

REACTIONS (4)
  - Nausea [Unknown]
  - Acute kidney injury [Unknown]
  - Mucosal inflammation [Unknown]
  - Neutropenia [Unknown]
